FAERS Safety Report 5690134-6 (Version None)
Quarter: 2008Q2

REPORT INFORMATION
  Report Type: 
  Country: None (occurrence: None)
  Receive Date: 20080401
  Receipt Date: 20080327
  Transmission Date: 20081010
  Serious: Yes (Life-Threatening, Other)
  Sender: FDA-Public Use
  Company Number: PHHY2008JP01626

PATIENT
  Age: 77 Year
  Sex: Male
  Weight: 45 kg

DRUGS (4)
  1. PARLODEL [Suspect]
     Indication: PARKINSON'S DISEASE
     Dosage: 100 MG/DAY
     Route: 048
     Dates: end: 19980319
  2. PARLODEL [Suspect]
     Dosage: 10 MG, QID
     Route: 048
     Dates: start: 20061205
  3. CARBIDOPA AND LEVODOPA [Suspect]
     Indication: PARKINSON'S DISEASE
  4. CARBIDOPA AND LEVODOPA [Suspect]
     Dosage: 100 MG, 6QD
     Route: 048
     Dates: start: 20061205

REACTIONS (9)
  - ABASIA [None]
  - ALANINE AMINOTRANSFERASE INCREASED [None]
  - ASPARTATE AMINOTRANSFERASE INCREASED [None]
  - BLOOD CREATINE PHOSPHOKINASE INCREASED [None]
  - BLOOD LACTATE DEHYDROGENASE INCREASED [None]
  - NEUROLEPTIC MALIGNANT SYNDROME [None]
  - ORAL DISCOMFORT [None]
  - PYREXIA [None]
  - SPEECH DISORDER [None]
